FAERS Safety Report 5208479-2 (Version None)
Quarter: 2006Q4

REPORT INFORMATION
  Report Type: 
  Country: None (occurrence: None)
  Receive Date: 20061027
  Receipt Date: 20060217
  Transmission Date: 20070319
  Serious: Yes (Other)
  Sender: FDA-Public Use
  Company Number: HQWYE244919JUL04

PATIENT
  Age: 58 Year
  Sex: Female

DRUGS (3)
  1. PREMARIN [Suspect]
     Indication: MENOPAUSAL SYMPTOMS
  2. PREMPRO [Suspect]
     Indication: HORMONE REPLACEMENT THERAPY
  3. PROVERA [Suspect]
     Indication: MENOPAUSAL SYMPTOMS

REACTIONS (1)
  - BREAST CANCER [None]
